FAERS Safety Report 7182927-3 (Version None)
Quarter: 2010Q4

REPORT INFORMATION
  Report Type: 
  Country: None (occurrence: None)
  Receive Date: 20101209
  Receipt Date: 20101201
  Transmission Date: 20110411
  Serious: Yes (Other)
  Sender: FDA-Public Use
  Company Number: 2010JP007098

PATIENT
  Sex: Male

DRUGS (1)
  1. PROGRAF [Suspect]
     Dosage: ORAL
     Route: 048

REACTIONS (1)
  - BONE MARROW FAILURE [None]
